FAERS Safety Report 24545837 (Version 1)
Quarter: 2024Q4

REPORT INFORMATION
  Report Type: Spontaneous
  Country: CN (occurrence: CN)
  Receive Date: 20241024
  Receipt Date: 20241024
  Transmission Date: 20250114
  Serious: Yes (Life-Threatening)
  Sender: ALCON
  Company Number: CN-ALCON LABORATORIES-ALC2024CN004742

PATIENT
  Age: 60 Year
  Sex: Male
  Weight: 60 kg

DRUGS (1)
  1. FLUORESCITE [Suspect]
     Active Substance: FLUORESCEIN SODIUM
     Indication: Ophthalmological examination
     Dosage: 5 ML, ONCE/SINGLE
     Route: 042
     Dates: start: 20240721, end: 20240721

REACTIONS (2)
  - Rash erythematous [Recovered/Resolved]
  - Hypersensitivity [Recovered/Resolved]

NARRATIVE: CASE EVENT DATE: 20240721
